FAERS Safety Report 6841912-9 (Version None)
Quarter: 2010Q3

REPORT INFORMATION
  Report Type: 
  Country: None (occurrence: None)
  Receive Date: 20100714
  Receipt Date: 20081006
  Transmission Date: 20110219
  Serious: No
  Sender: FDA-Public Use
  Company Number: US-PFIZER INC-2007060097

PATIENT
  Sex: Female
  Weight: 46.27 kg

DRUGS (8)
  1. CHANTIX [Suspect]
     Indication: SMOKING CESSATION THERAPY
     Route: 048
     Dates: start: 20070601, end: 20080929
  2. SPIRIVA [Interacting]
     Indication: ASTHMA
  3. LITHIUM [Concomitant]
  4. ATIVAN [Concomitant]
  5. INDERAL [Concomitant]
  6. NEXIUM [Concomitant]
  7. LORATADINE [Concomitant]
  8. LAMICTAL [Concomitant]

REACTIONS (9)
  - ASTHENIA [None]
  - BONE PAIN [None]
  - DRUG INEFFECTIVE [None]
  - DRUG INTERACTION [None]
  - EMOTIONAL DISORDER [None]
  - IRRITABILITY [None]
  - MOOD SWINGS [None]
  - MUCOUS MEMBRANE DISORDER [None]
  - MUSCULAR WEAKNESS [None]
